FAERS Safety Report 9614880 (Version 1)
Quarter: 2013Q4

REPORT INFORMATION
  Report Type: Spontaneous
  Country: US (occurrence: None)
  Receive Date: 20131009
  Receipt Date: 20131009
  Transmission Date: 20140711
  Serious: Yes (Other)
  Sender: FDA-Public Use
  Company Number: None

PATIENT
  Age: 76 Year
  Sex: Female
  Weight: 85.5 kg

DRUGS (1)
  1. SODIUM FERRIC GLUCONATE [Suspect]
     Indication: IRON DEFICIENCY ANAEMIA
     Dosage: 500 MG, DAILY X 2 DOSES, IV
     Route: 042
     Dates: start: 20131002, end: 20131003

REACTIONS (2)
  - Pyrexia [None]
  - Thrombophlebitis superficial [None]
